FAERS Safety Report 23542910 (Version 1)
Quarter: 2024Q1

REPORT INFORMATION
  Report Type: Spontaneous
  Country: US (occurrence: US)
  Receive Date: 20240220
  Receipt Date: 20240220
  Transmission Date: 20240410
  Serious: Yes (Disabling, Other)
  Sender: FDA-Public Use
  Company Number: US-SANDOZ-SDZ2024US013958

PATIENT
  Age: 60 Year
  Sex: Male

DRUGS (2)
  1. CARVEDILOL [Suspect]
     Active Substance: CARVEDILOL
     Indication: Product used for unknown indication
     Dosage: 12.5 MG, BID
     Route: 065
     Dates: start: 202204
  2. ENTRESTO [Suspect]
     Active Substance: SACUBITRIL\VALSARTAN
     Indication: Product used for unknown indication
     Dosage: UNK, 24/26MG BID
     Route: 065
     Dates: start: 202201

REACTIONS (7)
  - Meningitis [Recovering/Resolving]
  - Hallucination [Recovered/Resolved]
  - Peripheral swelling [Not Recovered/Not Resolved]
  - Gait disturbance [Recovering/Resolving]
  - Ear discomfort [Not Recovered/Not Resolved]
  - Hypertension [Not Recovered/Not Resolved]
  - Dizziness [Not Recovered/Not Resolved]

NARRATIVE: CASE EVENT DATE: 20230601
